FAERS Safety Report 17806411 (Version 1)
Quarter: 2020Q2

REPORT INFORMATION
  Report Type: Spontaneous
  Country: GB (occurrence: GB)
  Receive Date: 20200520
  Receipt Date: 20200520
  Transmission Date: 20200714
  Serious: Yes (Other)
  Sender: FDA-Public Use
  Company Number: NVSC2020GB044540

PATIENT
  Sex: Female

DRUGS (2)
  1. SOMATROPIN. [Suspect]
     Active Substance: SOMATROPIN
     Indication: GROWTH HORMONE DEFICIENCY
     Dosage: 1 MG, QD
     Route: 065
     Dates: start: 20190109
  2. SOMATROPIN. [Suspect]
     Active Substance: SOMATROPIN
     Indication: GROWTH HORMONE DEFICIENCY
     Dosage: 1.2 MG, QD
     Route: 065
     Dates: start: 202002

REACTIONS (7)
  - Haemorrhage [Unknown]
  - Contusion [Unknown]
  - Hormone level abnormal [Unknown]
  - Injection site pain [Unknown]
  - Injection site bruising [Unknown]
  - Aggression [Unknown]
  - Injection site haemorrhage [Unknown]
